FAERS Safety Report 7225312-8 (Version None)
Quarter: 2011Q1

REPORT INFORMATION
  Report Type: 
  Country: None (occurrence: None)
  Receive Date: 20110104
  Receipt Date: 20101223
  Transmission Date: 20110831
  Serious: Yes (Hospitalization)
  Sender: FDA-Public Use
  Company Number: 020097

PATIENT
  Sex: Female

DRUGS (5)
  1. PARACET [Concomitant]
  2. VENOFER [Concomitant]
  3. LEVOTHYROXINE SODIUM [Concomitant]
  4. LEDERSPAN [Concomitant]
  5. CIMZIA [Suspect]
     Indication: ANKYLOSING SPONDYLITIS
     Dosage: 200 MG 1X/2 WEEKS SUBCUTANEOUS
     Route: 058
     Dates: start: 20100706, end: 20100819

REACTIONS (9)
  - MOUTH HAEMORRHAGE [None]
  - GENITAL DISORDER FEMALE [None]
  - WOUND HAEMORRHAGE [None]
  - PHARYNGEAL HAEMORRHAGE [None]
  - VAGINAL HAEMORRHAGE [None]
  - LARGE INTESTINAL HAEMORRHAGE [None]
  - EPISTAXIS [None]
  - GENERAL PHYSICAL HEALTH DETERIORATION [None]
  - OFF LABEL USE [None]
